FAERS Safety Report 5283220-6 (Version None)
Quarter: 2007Q2

REPORT INFORMATION
  Report Type: 
  Country: None (occurrence: None)
  Receive Date: 20070402
  Receipt Date: 20070326
  Transmission Date: 20071010
  Serious: Yes (Hospitalization)
  Sender: FDA-Public Use
  Company Number: FR-GLAXOSMITHKLINE-B0463446A

PATIENT
  Age: 6 Year
  Sex: Female
  Weight: 30 kg

DRUGS (3)
  1. LAMICTAL [Suspect]
     Dosage: 150MG PER DAY
     Route: 048
     Dates: start: 20051115
  2. EPITOMAX [Suspect]
     Dosage: 500MG TWICE PER DAY
     Route: 048
     Dates: start: 20050615, end: 20070306
  3. VALPROATE SODIUM + VALPROIC ACID [Concomitant]
     Dosage: 350MG TWICE PER DAY
     Route: 048
     Dates: start: 20061115

REACTIONS (4)
  - ASPIRATION [None]
  - GAIT DISTURBANCE [None]
  - SPEECH DISORDER [None]
  - TREMOR [None]
